FAERS Safety Report 6122781-1 (Version None)
Quarter: 2009Q1

REPORT INFORMATION
  Report Type: 
  Country: None (occurrence: None)
  Receive Date: 20090318
  Receipt Date: 20090317
  Transmission Date: 20090719
  Serious: Yes (Other)
  Sender: FDA-Public Use
  Company Number: A0773482A

PATIENT
  Age: 61 Year
  Sex: Female

DRUGS (1)
  1. ALLI [Suspect]
     Route: 048

REACTIONS (4)
  - DEHYDRATION [None]
  - DRUG INEFFECTIVE [None]
  - DRY SKIN [None]
  - SKIN ATROPHY [None]
